FAERS Safety Report 7461608-2 (Version None)
Quarter: 2011Q2

REPORT INFORMATION
  Report Type: 
  Country: None (occurrence: None)
  Receive Date: 20110506
  Receipt Date: 20110422
  Transmission Date: 20111010
  Serious: Yes (Other)
  Sender: FDA-Public Use
  Company Number: US-JNJFOC-20110411664

PATIENT
  Age: 60 Year
  Sex: Female
  Weight: 146.06 kg

DRUGS (3)
  1. NUCYNTA [Suspect]
     Indication: PROCEDURAL PAIN
     Dosage: EVERY 3 HOURS AS NEEDED (NO MORE THAN 6 PER DAY)
     Route: 048
  2. FLEXERIL [Concomitant]
     Route: 065
  3. MOBIC [Concomitant]
     Route: 065

REACTIONS (1)
  - DIARRHOEA HAEMORRHAGIC [None]
